FAERS Safety Report 13908296 (Version 1)
Quarter: 2017Q3

REPORT INFORMATION
  Report Type: Spontaneous
  Country: BR (occurrence: BR)
  Receive Date: 20170826
  Receipt Date: 20170826
  Transmission Date: 20171127
  Serious: Yes (Other)
  Sender: FDA-Public Use
  Company Number: BR-AMGEN-BRASP2016048160

PATIENT
  Age: 66 Year
  Sex: Female

DRUGS (1)
  1. ENBREL [Suspect]
     Active Substance: ETANERCEPT
     Indication: RHEUMATOID ARTHRITIS
     Dosage: 50 MG, ONCE WEEKLY
     Route: 058
     Dates: start: 201507

REACTIONS (6)
  - Injection site erythema [Not Recovered/Not Resolved]
  - Diabetes mellitus [Unknown]
  - Injection site pruritus [Not Recovered/Not Resolved]
  - Wrong technique in product usage process [Unknown]
  - Fear of injection [Unknown]
  - Injection site hypersensitivity [Not Recovered/Not Resolved]
